FAERS Safety Report 17568988 (Version 1)
Quarter: 2020Q1

REPORT INFORMATION
  Report Type: Spontaneous
  Country: US (occurrence: US)
  Receive Date: 20200321
  Receipt Date: 20200321
  Transmission Date: 20200409
  Serious: No
  Sender: FDA-Public Use
  Company Number: US-TEVA-2020-US-1205429

PATIENT
  Sex: Female

DRUGS (1)
  1. METHYLPHENIDATE TEVA [Suspect]
     Active Substance: METHYLPHENIDATE
     Indication: ATTENTION DEFICIT/HYPERACTIVITY DISORDER
     Dosage: 54 MG
     Route: 065
     Dates: start: 2017

REACTIONS (3)
  - Behaviour disorder [Unknown]
  - Drug ineffective [Unknown]
  - Product substitution issue [Unknown]
